FAERS Safety Report 8116817-6 (Version None)
Quarter: 2012Q1

REPORT INFORMATION
  Report Type: 
  Country: None (occurrence: None)
  Receive Date: 20120206
  Receipt Date: 20120202
  Transmission Date: 20120608
  Serious: Yes (Life-Threatening, Hospitalization, Other)
  Sender: FDA-Public Use
  Company Number: PHHY2011BR78898

PATIENT
  Age: 57 Year
  Sex: Male

DRUGS (7)
  1. FORMOTEROL FUMARATE [Suspect]
     Indication: CHRONIC OBSTRUCTIVE PULMONARY DISEASE
     Dosage: 1 DF, TID (3 INHALATIONS PER DAY)
  2. BECLOMETHASONE DIPROPIONATE [Suspect]
     Indication: CHRONIC OBSTRUCTIVE PULMONARY DISEASE
     Dosage: 1 DF, TID (3 INHALATIONS A DAY)
  3. DUOVENT [Suspect]
  4. BAMIFIX [Concomitant]
  5. ACETYLCYSTEINE [Concomitant]
     Dosage: 600 MG, UNK
  6. BUDESONIDE [Suspect]
  7. LOSARTAN POTASSIUM AND HYDROCHLOROTHIAZIDE [Concomitant]
     Dosage: 1 DF, QD

REACTIONS (5)
  - FATIGUE [None]
  - PNEUMONIA [None]
  - DYSPNOEA [None]
  - GAIT DISTURBANCE [None]
  - APPARENT DEATH [None]
